FAERS Safety Report 15050107 (Version 1)
Quarter: 2018Q2

REPORT INFORMATION
  Report Type: Spontaneous
  Country: US (occurrence: US)
  Receive Date: 20180622
  Receipt Date: 20180622
  Transmission Date: 20180711
  Serious: No
  Sender: FDA-Public Use
  Company Number: US-NATCO PHARMA-2018NAT00104

PATIENT
  Age: 65 Year
  Sex: Female

DRUGS (1)
  1. OSELTAMIVIR PHOSPHATE. [Suspect]
     Active Substance: OSELTAMIVIR PHOSPHATE
     Dosage: 75 MG, UNK
     Dates: start: 20180227, end: 20180228

REACTIONS (3)
  - Abdominal pain [Unknown]
  - Gastrooesophageal reflux disease [Unknown]
  - Rash [Unknown]

NARRATIVE: CASE EVENT DATE: 20180227
